FAERS Safety Report 20444418 (Version 1)
Quarter: 2022Q1

REPORT INFORMATION
  Report Type: Spontaneous
  Country: US (occurrence: None)
  Receive Date: 20220208
  Receipt Date: 20220208
  Transmission Date: 20220423
  Serious: No
  Sender: FDA-Public Use
  Company Number: 2022A038652

PATIENT
  Sex: Male

DRUGS (1)
  1. CALQUENCE [Suspect]
     Active Substance: ACALABRUTINIB
     Indication: Chronic lymphocytic leukaemia
     Route: 048
     Dates: start: 202103

REACTIONS (7)
  - Anaemia [Recovered/Resolved]
  - Red blood cell count decreased [Recovering/Resolving]
  - Haemoglobin decreased [Recovering/Resolving]
  - White blood cell count increased [Recovering/Resolving]
  - White blood cell count abnormal [Recovering/Resolving]
  - Therapeutic product effect variable [Not Recovered/Not Resolved]
  - Product use issue [Unknown]
